FAERS Safety Report 23949979 (Version 1)
Quarter: 2024Q2

REPORT INFORMATION
  Report Type: Spontaneous
  Country: US (occurrence: US)
  Receive Date: 20240607
  Receipt Date: 20240607
  Transmission Date: 20240716
  Serious: Yes (Hospitalization, Other)
  Sender: FDA-Public Use
  Company Number: US-TEVA-VS-3205186

PATIENT
  Age: 64 Year
  Sex: Female

DRUGS (1)
  1. AUSTEDO [Suspect]
     Active Substance: DEUTETRABENAZINE
     Route: 065
     Dates: start: 202002

REACTIONS (8)
  - Intracranial aneurysm [Not Recovered/Not Resolved]
  - Pneumonia aspiration [Recovered/Resolved]
  - Depression [Unknown]
  - Off label use [Unknown]
  - Anxiety [Unknown]
  - Headache [Recovered/Resolved]
  - Therapy change [Unknown]
  - Cardiac arrest [Unknown]

NARRATIVE: CASE EVENT DATE: 20200101
